FAERS Safety Report 23866080 (Version 2)
Quarter: 2025Q2

REPORT INFORMATION
  Report Type: Spontaneous
  Country: AT (occurrence: AT)
  Receive Date: 20240517
  Receipt Date: 20250501
  Transmission Date: 20250716
  Serious: Yes (Other)
  Sender: RANBAXY
  Company Number: AT-SUN PHARMACEUTICAL INDUSTRIES LTD-2024R1-446443

PATIENT
  Age: 63 Year
  Sex: Male

DRUGS (2)
  1. CALCITRIOL [Suspect]
     Active Substance: CALCITRIOL
     Indication: Hypophosphataemia
     Route: 065
  2. FERRIC CARBOXYMALTOSE [Suspect]
     Active Substance: FERRIC CARBOXYMALTOSE
     Indication: Haemorrhage
     Route: 065

REACTIONS (1)
  - Calculus urinary [Recovering/Resolving]
